FAERS Safety Report 18952203 (Version 7)
Quarter: 2025Q1

REPORT INFORMATION
  Report Type: Spontaneous
  Country: CA (occurrence: CA)
  Receive Date: 20210301
  Receipt Date: 20250305
  Transmission Date: 20250409
  Serious: Yes (Other)
  Sender: BAUSCH AND LOMB
  Company Number: CA-BAUSCH-BL-2021-005940

PATIENT
  Age: 49 Year
  Sex: Female

DRUGS (27)
  1. DIAZEPAM [Interacting]
     Active Substance: DIAZEPAM
     Indication: Preoperative care
     Route: 065
  2. CLONAZEPAM [Interacting]
     Active Substance: CLONAZEPAM
     Indication: Depression
     Route: 065
  3. CLONAZEPAM [Interacting]
     Active Substance: CLONAZEPAM
     Indication: Anxiety
     Route: 065
  4. SEROQUEL [Interacting]
     Active Substance: QUETIAPINE FUMARATE
     Indication: Depression
     Route: 065
  5. SEROQUEL [Interacting]
     Active Substance: QUETIAPINE FUMARATE
     Indication: Anxiety
  6. PAROXETINE [Interacting]
     Active Substance: PAROXETINE
     Indication: Depression
     Route: 065
  7. PAROXETINE [Interacting]
     Active Substance: PAROXETINE
     Indication: Anxiety
  8. FENTANYL [Interacting]
     Active Substance: FENTANYL
     Indication: Anaesthesia
     Route: 065
  9. FENTANYL [Interacting]
     Active Substance: FENTANYL
     Route: 065
  10. FENTANYL [Interacting]
     Active Substance: FENTANYL
     Route: 042
  11. METHYLENE BLUE [Interacting]
     Active Substance: METHYLENE BLUE
     Indication: Hypotension
     Route: 065
  12. METHYLENE BLUE [Interacting]
     Active Substance: METHYLENE BLUE
     Indication: Anaesthesia
  13. FLUVOXAMINE [Interacting]
     Active Substance: FLUVOXAMINE
     Indication: Product used for unknown indication
     Route: 065
  14. MEPERIDINE HYDROCHLORIDE [Interacting]
     Active Substance: MEPERIDINE HYDROCHLORIDE
     Indication: Product used for unknown indication
     Route: 065
  15. MIDAZOLAM [Interacting]
     Active Substance: MIDAZOLAM
     Indication: Anaesthesia
     Route: 065
  16. MIDAZOLAM [Interacting]
     Active Substance: MIDAZOLAM
     Indication: Hypotension
  17. NOREPINEPHRINE [Interacting]
     Active Substance: NOREPINEPHRINE
     Indication: Hypotension
     Route: 065
  18. PROPOFOL [Interacting]
     Active Substance: PROPOFOL
     Indication: Induction of anaesthesia
     Route: 065
  19. QUETIAPINE FUMARATE [Interacting]
     Active Substance: QUETIAPINE FUMARATE
     Indication: Depression
     Dosage: 25.0 MILLIGRAM, 2 EVERY 1 DAY
     Route: 065
  20. QUETIAPINE FUMARATE [Interacting]
     Active Substance: QUETIAPINE FUMARATE
     Indication: Hypotension
     Dosage: 25.0 MILLIGRAM, 2 EVERY 1 DAY, 2 ADMINISTRATIONS GIVEN
     Route: 048
  21. QUETIAPINE FUMARATE [Interacting]
     Active Substance: QUETIAPINE FUMARATE
     Indication: Anxiety
     Dosage: 25.0 MILLIGRAM, 2 ADMINISTRATIONS GIVEN
     Route: 048
  22. ROCURONIUM BROMIDE [Interacting]
     Active Substance: ROCURONIUM BROMIDE
     Indication: Hypotonia
     Route: 065
  23. ROCURONIUM BROMIDE [Interacting]
     Active Substance: ROCURONIUM BROMIDE
     Indication: Depression
  24. ROCURONIUM BROMIDE [Interacting]
     Active Substance: ROCURONIUM BROMIDE
     Indication: Anxiety
  25. SEVOFLURANE [Interacting]
     Active Substance: SEVOFLURANE
     Indication: Maintenance of anaesthesia
     Route: 065
  26. SEVOFLURANE [Interacting]
     Active Substance: SEVOFLURANE
     Indication: Depression
  27. SEVOFLURANE [Interacting]
     Active Substance: SEVOFLURANE
     Indication: Anxiety

REACTIONS (2)
  - Serotonin syndrome [Recovered/Resolved]
  - Drug interaction [Unknown]
